FAERS Safety Report 9355719 (Version 1)
Quarter: 2013Q2

REPORT INFORMATION
  Report Type: Spontaneous
  Country: US (occurrence: US)
  Receive Date: 20130619
  Receipt Date: 20130619
  Transmission Date: 20140414
  Serious: Yes (Other)
  Sender: FDA-Public Use
  Company Number: US-ROCHE-1237066

PATIENT
  Age: 54 Year
  Sex: Female
  Weight: 70.3 kg

DRUGS (5)
  1. XOLAIR [Suspect]
     Indication: ASTHMA
     Route: 058
     Dates: start: 20120928
  2. XOLAIR [Suspect]
     Indication: URTICARIA
     Route: 058
     Dates: start: 20130415, end: 20130415
  3. COZAAR [Concomitant]
     Route: 065
  4. ADVAIR [Concomitant]
  5. SINGULAIR [Concomitant]
     Route: 065

REACTIONS (3)
  - Local swelling [Not Recovered/Not Resolved]
  - Arthralgia [Not Recovered/Not Resolved]
  - Headache [Not Recovered/Not Resolved]
